FAERS Safety Report 9794362 (Version 3)
Quarter: 2014Q1

REPORT INFORMATION
  Report Type: Spontaneous
  Country: US (occurrence: US)
  Receive Date: 20140102
  Receipt Date: 20140213
  Transmission Date: 20141002
  Serious: Yes (Life-Threatening, Hospitalization, Other)
  Sender: FDA-Public Use
  Company Number: CHPA2013US018937

PATIENT
  Age: 72 Year
  Sex: Female

DRUGS (4)
  1. CONTROL PLP [Suspect]
     Indication: SMOKING CESSATION THERAPY
     Dosage: 21 MG, QD
     Route: 062
     Dates: start: 2013, end: 201312
  2. CONTROL PLP [Suspect]
     Dosage: 14 MG, QD
     Route: 062
     Dates: start: 2013, end: 2013
  3. PRIVATE LABEL [Suspect]
     Indication: SMOKING CESSATION THERAPY
     Dosage: 21 MG, QD
     Route: 062
     Dates: start: 20130930, end: 2013
  4. PRIVATE LABEL [Suspect]
     Dosage: 14 MG, QD
     Route: 062
     Dates: start: 2013, end: 2013

REACTIONS (9)
  - Overdose [Unknown]
  - Aneurysm [Not Recovered/Not Resolved]
  - Dermatitis [Recovering/Resolving]
  - Erythema [Recovering/Resolving]
  - Local swelling [Recovering/Resolving]
  - Rash [Recovering/Resolving]
  - Pruritus [Unknown]
  - Skin irritation [Recovering/Resolving]
  - Inappropriate schedule of drug administration [Unknown]
